FAERS Safety Report 9261452 (Version 2)
Quarter: 2013Q2

REPORT INFORMATION
  Report Type: Report from Study
  Country: BR (occurrence: BR)
  Receive Date: 20130429
  Receipt Date: 20130509
  Transmission Date: 20140414
  Serious: Yes (Death)
  Sender: FDA-Public Use
  Company Number: BR-ABBOTT-13P-020-1081715-00

PATIENT
  Age: 72 Year
  Sex: Female
  Weight: 70 kg

DRUGS (6)
  1. HUMIRA [Suspect]
     Indication: RHEUMATOID ARTHRITIS
     Route: 058
     Dates: start: 20100301, end: 201302
  2. METHOTREXATE [Concomitant]
     Indication: PRODUCT USED FOR UNKNOWN INDICATION
  3. PREDNISOLONE [Concomitant]
     Indication: PRODUCT USED FOR UNKNOWN INDICATION
  4. UNKNOWN ANTIHYPERTENSIVE DRUG [Concomitant]
     Indication: ISCHAEMIC CARDIOMYOPATHY
  5. UNKNOWN ANTIPLATELET DRUG [Concomitant]
     Indication: PRODUCT USED FOR UNKNOWN INDICATION
  6. VASODILATORS DRUGS [Concomitant]
     Indication: PRODUCT USED FOR UNKNOWN INDICATION

REACTIONS (3)
  - Uterine neoplasm [Fatal]
  - Cardio-respiratory arrest [Fatal]
  - Embolism [Fatal]
